FAERS Safety Report 6313233-4 (Version None)
Quarter: 2009Q3

REPORT INFORMATION
  Report Type: 
  Country: None (occurrence: None)
  Receive Date: 20090818
  Receipt Date: 20090807
  Transmission Date: 20100115
  Serious: Yes (Other)
  Sender: FDA-Public Use
  Company Number: JP-PFIZER INC-2009245662

PATIENT
  Age: 54 Year

DRUGS (7)
  1. SELARA [Suspect]
     Indication: PRIMARY HYPERALDOSTERONISM
     Dosage: 25 MG, 1X/DAY
     Route: 048
     Dates: start: 20090515, end: 20090703
  2. THYRADIN [Concomitant]
  3. ASPARA K [Concomitant]
  4. ONE-ALPHA [Concomitant]
     Dosage: UNK
     Dates: end: 20090709
  5. SLOW-K [Concomitant]
  6. NORVASC [Concomitant]
     Dosage: UNK
     Dates: start: 20090430
  7. ASPARTATE CALCIUM [Suspect]
     Dosage: UNK

REACTIONS (1)
  - HYPERCALCAEMIA [None]
